FAERS Safety Report 26116183 (Version 1)
Quarter: 2025Q4

REPORT INFORMATION
  Report Type: Report from Study
  Country: US (occurrence: US)
  Receive Date: 20251203
  Receipt Date: 20251203
  Transmission Date: 20260117
  Serious: No
  Sender: DR REDDYS
  Company Number: US-DRL-USA-USA/2025/11/017777

PATIENT
  Sex: Female
  Weight: 62.6 kg

DRUGS (2)
  1. JAVYGTOR [Suspect]
     Active Substance: SAPROPTERIN DIHYDROCHLORIDE
     Indication: Phenylketonuria
     Route: 048
  2. JAVYGTOR [Suspect]
     Active Substance: SAPROPTERIN DIHYDROCHLORIDE
     Indication: Phenylketonuria
     Dosage: DISSOLVE TWO 100MG POWDER PACKETS AND TWO 500MG IN 4 TO 8 OUNCES OF WATER OR APPLE JUICE AND TAKE ON
     Route: 048

REACTIONS (1)
  - Inappropriate schedule of product administration [Unknown]
